FAERS Safety Report 11575656 (Version 1)
Quarter: 2015Q3

REPORT INFORMATION
  Report Type: Spontaneous
  Country: US (occurrence: US)
  Receive Date: 20150930
  Receipt Date: 20150930
  Transmission Date: 20151125
  Serious: Yes (Life-Threatening, Hospitalization, Other)
  Sender: FDA-Public Use
  Company Number: US-ACTAVIS-2015-19501

PATIENT
  Age: 13 Year
  Sex: Female

DRUGS (7)
  1. MAGNESIUM SULFATE. [Concomitant]
     Active Substance: MAGNESIUM SULFATE
     Indication: STATUS ASTHMATICUS
     Dosage: 2 G, SINGLE
     Route: 042
  2. DEXAMETHASONE. [Concomitant]
     Active Substance: DEXAMETHASONE
     Indication: ASTHMA
     Dosage: 10 MG, SINGLE
     Route: 042
  3. ALBUTEROL SULFATE (AMALLC) [Suspect]
     Active Substance: ALBUTEROL SULFATE
     Indication: ASTHMA
     Dosage: REPEATED, INTERMITTENT NEBULISATIONS: 22.5 MG IN 5 H
     Route: 055
  4. ALBUTEROL SULFATE (AMALLC) [Suspect]
     Active Substance: ALBUTEROL SULFATE
     Dosage: 2.5 MG CONTINUED EVERY 2H, 2 DOSES
     Route: 055
  5. ALBUTEROL SULFATE (AMALLC) [Suspect]
     Active Substance: ALBUTEROL SULFATE
     Dosage: CONTINUOUS NEBULIZATION OF 5 MG/H FOR ONE HOUR
     Route: 055
  6. SOLU-MEDROL [Concomitant]
     Active Substance: METHYLPREDNISOLONE SODIUM SUCCINATE
     Indication: STATUS ASTHMATICUS
     Dosage: 60 MG, SINGLE
     Route: 042
  7. SALINE [Concomitant]
     Active Substance: SODIUM CHLORIDE
     Dosage: 1 LITRE NORMAL SALINE (NS) BOLUS
     Route: 040

REACTIONS (2)
  - Diastolic hypotension [Recovered/Resolved]
  - Lactic acidosis [Recovered/Resolved]
